FAERS Safety Report 7187514 (Version 4)
Quarter: 2014Q3

REPORT INFORMATION
  Report Type: Report from Study
  Country: JP (occurrence: JP)
  Receive Date: 20091124
  Receipt Date: 20140927
  Transmission Date: 20150326
  Serious: Yes (Other)
  Sender: FDA-Public Use
  Company Number: PHHY2009JP49921

PATIENT
  Age: 66 Year
  Sex: Male

DRUGS (10)
  1. AMN107 [Suspect]
     Active Substance: NILOTINIB
     Indication: CHRONIC MYELOID LEUKAEMIA
     Dosage: 800 MG, UNK
     Route: 048
     Dates: start: 20090821, end: 20091012
  2. AMN107 [Suspect]
     Active Substance: NILOTINIB
     Dosage: 400 MG, UNK
     Dates: start: 20100630
  3. ADONA [Concomitant]
     Active Substance: CARBAZOCHROME SODIUM SULFONATE
     Indication: CHRONIC MYELOID LEUKAEMIA
     Dosage: 90 MG, UNK
     Route: 048
     Dates: start: 20081023
  4. AMN107 [Suspect]
     Active Substance: NILOTINIB
     Dosage: 800 MG, UNK
     Route: 048
     Dates: start: 20091021
  5. AMN107 [Suspect]
     Active Substance: NILOTINIB
     Dosage: 400 MG, UNK
     Route: 048
     Dates: start: 20091013, end: 20091013
  6. LASIX [Concomitant]
     Active Substance: FUROSEMIDE
     Indication: CHRONIC MYELOID LEUKAEMIA
     Dosage: 40 MG, UNK
     Route: 048
     Dates: start: 20070906, end: 20091013
  7. ALFAROL [Concomitant]
     Active Substance: ALFACALCIDOL
     Indication: CHRONIC MYELOID LEUKAEMIA
     Dosage: 0.5 UG, UNK
     Route: 048
     Dates: start: 20090727
  8. CINAL [Concomitant]
     Active Substance: ASCORBIC ACID\CALCIUM PANTOTHENATE
     Indication: CHRONIC MYELOID LEUKAEMIA
     Dosage: 2 MG, UNK
     Route: 048
     Dates: start: 20081023
  9. AMN107 [Suspect]
     Active Substance: NILOTINIB
     Dosage: 400 MG, UNK
     Dates: start: 20090901
  10. AMN107 [Suspect]
     Active Substance: NILOTINIB
     Dosage: 200 MG, UNK

REACTIONS (3)
  - Electrocardiogram QT prolonged [Recovered/Resolved]
  - Blood glucose increased [Not Recovered/Not Resolved]
  - Labelled drug-food interaction medication error [Unknown]

NARRATIVE: CASE EVENT DATE: 20090903
